FAERS Safety Report 8598182-3 (Version None)
Quarter: 2012Q3

REPORT INFORMATION
  Report Type: 
  Country: None (occurrence: None)
  Receive Date: 20120816
  Receipt Date: 20120807
  Transmission Date: 20120928
  Serious: Yes (Death)
  Sender: FDA-Public Use
  Company Number: JP-SANOFI-AVENTIS-2012SA045027

PATIENT
  Age: 81 Year
  Sex: Male
  Weight: 60 kg

DRUGS (6)
  1. FAMOTIDINE [Concomitant]
     Route: 048
     Dates: end: 20120410
  2. MUCOSTA [Concomitant]
     Route: 048
     Dates: end: 20120410
  3. CLOPIDOGREL BISULFATE [Suspect]
     Dosage: MAINTENANCE DOSE
     Route: 048
     Dates: start: 20120331, end: 20120409
  4. ASPIRIN [Concomitant]
     Route: 048
     Dates: start: 20120330, end: 20120410
  5. ROSUVASTATIN [Concomitant]
     Route: 048
     Dates: start: 20120331, end: 20120410
  6. CLOPIDOGREL BISULFATE [Suspect]
     Dosage: STARTING DOSE
     Route: 048
     Dates: start: 20120330, end: 20120330

REACTIONS (1)
  - PNEUMONIA CYTOMEGALOVIRAL [None]
